FAERS Safety Report 14131306 (Version 2)
Quarter: 2018Q4

REPORT INFORMATION
  Report Type: Report from Study
  Country: US (occurrence: US)
  Receive Date: 20171026
  Receipt Date: 20181130
  Transmission Date: 20190204
  Serious: Yes (Death, Life-Threatening, Hospitalization, Other)
  Sender: FDA-Public Use
  Company Number: US-ALEXION PHARMACEUTICALS INC.-A201711401

PATIENT
  Age: 34 Year
  Sex: Male
  Weight: 50 kg

DRUGS (2)
  1. SOLIRIS [Suspect]
     Active Substance: ECULIZUMAB
     Dosage: UNK UNK, Q2W
     Route: 065
  2. SOLIRIS [Suspect]
     Active Substance: ECULIZUMAB
     Indication: PAROXYSMAL NOCTURNAL HAEMOGLOBINURIA
     Dosage: UNK UNK, QW
     Route: 065

REACTIONS (2)
  - Lymphatic system neoplasm [Not Recovered/Not Resolved]
  - Metastatic neoplasm [Fatal]

NARRATIVE: CASE EVENT DATE: 20170807
